FAERS Safety Report 12542418 (Version 1)
Quarter: 2016Q3

REPORT INFORMATION
  Report Type: Spontaneous
  Country: US (occurrence: US)
  Receive Date: 20160708
  Receipt Date: 20160708
  Transmission Date: 20161109
  Serious: No
  Sender: FDA-Public Use
  Company Number: US-ASTRAZENECA-2016SE71369

PATIENT
  Sex: Female
  Weight: 85.7 kg

DRUGS (1)
  1. ANASTROZOLE. [Suspect]
     Active Substance: ANASTROZOLE
     Indication: BREAST CANCER
     Route: 048
     Dates: start: 2015

REACTIONS (7)
  - Arthralgia [Unknown]
  - Erythema [Unknown]
  - Insomnia [Unknown]
  - Back pain [Unknown]
  - Movement disorder [Unknown]
  - Hot flush [Unknown]
  - Joint lock [Unknown]
